FAERS Safety Report 10515300 (Version 1)
Quarter: 2014Q4

REPORT INFORMATION
  Report Type: Spontaneous
  Country: US (occurrence: US)
  Receive Date: 20141014
  Receipt Date: 20141014
  Transmission Date: 20150528
  Serious: Yes (Other)
  Sender: FDA-Public Use
  Company Number: US-AMGEN-USASP2014077778

PATIENT
  Age: 67 Year
  Sex: Male

DRUGS (4)
  1. PERCOCET [Concomitant]
     Active Substance: ACETAMINOPHEN\OXYCODONE HYDROCHLORIDE
     Indication: PAIN
     Dosage: UNK
  2. METFORMIN [Concomitant]
     Active Substance: METFORMIN HYDROCHLORIDE
     Indication: DIABETES MELLITUS
     Dosage: UNK UNK, TWO IN THE MORNING TWO IN THE EVENING
  3. ENBREL [Suspect]
     Active Substance: ETANERCEPT
     Indication: PSORIATIC ARTHROPATHY
     Dosage: 50 MG, QWK
     Route: 065
     Dates: end: 20140928
  4. SYNTHROID [Concomitant]
     Active Substance: LEVOTHYROXINE SODIUM
     Dosage: UNK

REACTIONS (11)
  - Mood altered [Unknown]
  - Eating disorder [Unknown]
  - Ocular hyperaemia [Not Recovered/Not Resolved]
  - Blood glucose increased [Unknown]
  - Memory impairment [Unknown]
  - Headache [Not Recovered/Not Resolved]
  - Staring [Unknown]
  - Psoriatic arthropathy [Not Recovered/Not Resolved]
  - Fatigue [Unknown]
  - Arthritis [Unknown]
  - Disturbance in social behaviour [Unknown]

NARRATIVE: CASE EVENT DATE: 20141008
